FAERS Safety Report 7264681-X (Version None)
Quarter: 2011Q1

REPORT INFORMATION
  Report Type: 
  Country: None (occurrence: None)
  Receive Date: 20110131
  Receipt Date: 20110121
  Transmission Date: 20110831
  Serious: No
  Sender: FDA-Public Use
  Company Number: US-PFIZER INC-2011015697

PATIENT
  Sex: Female
  Weight: 72.6 kg

DRUGS (2)
  1. PRISTIQ [Suspect]
     Indication: DEPRESSION
  2. PRISTIQ [Suspect]
     Indication: ANXIETY
     Dosage: UNK
     Route: 048
     Dates: start: 20101201, end: 20110101

REACTIONS (4)
  - ALOPECIA [None]
  - HEADACHE [None]
  - NIGHT SWEATS [None]
  - HOT FLUSH [None]
